FAERS Safety Report 5753046-5 (Version None)
Quarter: 2008Q2

REPORT INFORMATION
  Report Type: 
  Country: None (occurrence: None)
  Receive Date: 20080527
  Receipt Date: 20080518
  Transmission Date: 20081010
  Serious: Yes (Hospitalization)
  Sender: FDA-Public Use
  Company Number: 82557

PATIENT
  Age: 32 Year
  Sex: Female

DRUGS (1)
  1. MIGRAINE CAPLET/PERRIGO COMPANY [Suspect]
     Indication: MIGRAINE
     Dosage: 250+250+65/ONCE/ORAL USE
     Route: 048
     Dates: start: 20080112, end: 20080112

REACTIONS (2)
  - PRURITUS [None]
  - RASH [None]
